FAERS Safety Report 14258262 (Version 2)
Quarter: 2017Q4

REPORT INFORMATION
  Report Type: Report from Study
  Country: US (occurrence: US)
  Receive Date: 20171207
  Receipt Date: 20171218
  Transmission Date: 20180321
  Serious: Yes (Hospitalization)
  Sender: FDA-Public Use
  Company Number: US-ROCHE-2035310

PATIENT
  Age: 56 Year
  Sex: Male
  Weight: 77.4 kg

DRUGS (2)
  1. ATEZOLIZUMAB. [Suspect]
     Active Substance: ATEZOLIZUMAB
     Indication: METASTATIC RENAL CELL CARCINOMA
     Dosage: MOST RECENT DOSE OF ATEZOLIZUMAB WAS ON 16/AUG/2017
     Route: 042
     Dates: start: 20170727
  2. BEVACIZUMAB. [Suspect]
     Active Substance: BEVACIZUMAB
     Indication: METASTATIC RENAL CELL CARCINOMA
     Dosage: MOST RECENT DOSE OF BEVACIZUMABWAS ON 16/AUG/2017
     Route: 042
     Dates: start: 20170727

REACTIONS (11)
  - Hyponatraemia [Unknown]
  - Lactic acidosis [Unknown]
  - Metabolic disorder [Unknown]
  - Ascites [Unknown]
  - Cancer pain [Unknown]
  - Malnutrition [Unknown]
  - Multiple organ dysfunction syndrome [Unknown]
  - Acute kidney injury [Unknown]
  - Sepsis [Unknown]
  - Liver function test increased [Unknown]
  - Oedema [Unknown]

NARRATIVE: CASE EVENT DATE: 20170828
